FAERS Safety Report 8862528 (Version 8)
Quarter: 2013Q3

REPORT INFORMATION
  Report Type: Spontaneous
  Country: US (occurrence: US)
  Receive Date: 20121026
  Receipt Date: 20130709
  Transmission Date: 20140515
  Serious: Yes (Hospitalization, Other)
  Sender: FDA-Public Use
  Company Number: US-009507513-1202USA00847

PATIENT
  Sex: Female
  Weight: 81.63 kg

DRUGS (7)
  1. FOSAMAX [Suspect]
     Indication: OSTEOPOROSIS
     Dosage: 10 MG, QD
     Route: 048
     Dates: start: 200011, end: 200110
  2. FOSAMAX [Suspect]
     Dosage: 70 MG, QW
     Route: 048
     Dates: start: 200110
  3. FOSAMAX [Suspect]
     Dosage: 10 MG, UNK
     Route: 048
     Dates: end: 200112
  4. ALENDRONATE SODIUM [Suspect]
     Indication: OSTEOPOROSIS
     Dosage: 70 MG, QW
     Route: 048
     Dates: start: 200803, end: 201010
  5. CALCIUM (UNSPECIFIED) (+) VITAMIN D (UNSPECIFIED) [Concomitant]
     Indication: OSTEOPOROSIS
  6. DIOVAN [Concomitant]
     Indication: HYPERTENSION
     Dosage: 80 MG, QD
  7. VERAPAMIL [Concomitant]
     Indication: HYPERTENSION
     Dosage: 240 MG, BID

REACTIONS (35)
  - Femur fracture [Unknown]
  - Intramedullary rod insertion [Unknown]
  - Urinary tract infection [Unknown]
  - Small intestinal obstruction [Unknown]
  - Inflammation [Unknown]
  - Appendicitis [Unknown]
  - Hip surgery [Unknown]
  - Radius fracture [Recovered/Resolved]
  - Upper limb fracture [Unknown]
  - Type 2 diabetes mellitus [Unknown]
  - Hypercholesterolaemia [Unknown]
  - Incorrect dose administered [Unknown]
  - Nocturia [Not Recovered/Not Resolved]
  - Micturition urgency [Not Recovered/Not Resolved]
  - Cardiac murmur [Unknown]
  - Joint contracture [Unknown]
  - Osteopenia [Unknown]
  - Cataract operation [Unknown]
  - Arthroscopic surgery [Unknown]
  - Lumbar spinal stenosis [Unknown]
  - Mitral valve incompetence [Unknown]
  - Labile blood pressure [Recovering/Resolving]
  - Osteoarthritis [Unknown]
  - Wrist fracture [Unknown]
  - Oophorectomy bilateral [Unknown]
  - Cystopexy [Unknown]
  - Patella fracture [Unknown]
  - Tongue coated [Unknown]
  - Tongue dry [Unknown]
  - Rales [Unknown]
  - Oedema [Unknown]
  - Deep vein thrombosis [Unknown]
  - Diarrhoea [Unknown]
  - Oedema peripheral [Unknown]
  - Gastrooesophageal reflux disease [Unknown]
